FAERS Safety Report 5659518-6 (Version None)
Quarter: 2008Q1

REPORT INFORMATION
  Report Type: 
  Country: None (occurrence: None)
  Receive Date: 20080311
  Receipt Date: 20080303
  Transmission Date: 20080703
  Serious: Yes (Other)
  Sender: FDA-Public Use
  Company Number: PHBS2008BR01995

PATIENT
  Age: 72 Year
  Sex: Male
  Weight: 76 kg

DRUGS (2)
  1. EXFORGE [Suspect]
     Indication: HYPERTENSION
     Dosage: VALS 320 / AMLO 5 MG/DAY
     Route: 048
     Dates: start: 20071201
  2. METFORMIN HCL [Concomitant]
     Indication: DIABETES MELLITUS
     Dosage: 1 MG, QD
     Route: 048
     Dates: start: 20050101

REACTIONS (3)
  - BREAST PAIN [None]
  - SPINAL COMPRESSION FRACTURE [None]
  - TREMOR [None]
